FAERS Safety Report 6810299-X (Version None)
Quarter: 2010Q2

REPORT INFORMATION
  Report Type: 
  Country: None (occurrence: None)
  Receive Date: 20100630
  Receipt Date: 20100623
  Transmission Date: 20101027
  Serious: Yes (Other)
  Sender: FDA-Public Use
  Company Number: US-BRISTOL-MYERS SQUIBB COMPANY-15144678

PATIENT
  Age: 70 Year
  Sex: Female

DRUGS (7)
  1. ERBITUX [Suspect]
     Indication: TONSIL CANCER
     Route: 042
     Dates: start: 20100302, end: 20100323
  2. RADIATION THERAPY [Suspect]
     Indication: TONSIL CANCER
     Dosage: HAD RECEIVED A TOTAL DOSE OF 3060 GY
  3. STEROIDS [Concomitant]
  4. PHENERGAN [Concomitant]
  5. LORTAB [Concomitant]
  6. DIFLUCAN [Concomitant]
  7. XANAX [Concomitant]

REACTIONS (4)
  - DERMATITIS ACNEIFORM [None]
  - EPISTAXIS [None]
  - HYPERSENSITIVITY [None]
  - STOMATITIS [None]
